FAERS Safety Report 6571953-0 (Version None)
Quarter: 2010Q1

REPORT INFORMATION
  Report Type: 
  Country: None (occurrence: None)
  Receive Date: 20100205
  Receipt Date: 20100128
  Transmission Date: 20100710
  Serious: Yes (Hospitalization)
  Sender: FDA-Public Use
  Company Number: JP-ROCHE-683565

PATIENT
  Age: 56 Year
  Sex: Male

DRUGS (1)
  1. ROCEPHIN [Suspect]
     Indication: INFECTION
     Dosage: ROUTE: INTRAVENOUS (NOT OTHERWISE SPECIFIED).
     Route: 042
     Dates: start: 20100121, end: 20100126

REACTIONS (1)
  - MYOCLONUS [None]
